FAERS Safety Report 13408761 (Version 1)
Quarter: 2017Q2

REPORT INFORMATION
  Report Type: Spontaneous
  Country: US (occurrence: US)
  Receive Date: 20170406
  Receipt Date: 20170406
  Transmission Date: 20170830
  Serious: No
  Sender: FDA-Public Use
  Company Number: None

PATIENT

DRUGS (2)
  1. LIDOCAINE HYDROCHLORIDE. [Suspect]
     Active Substance: LIDOCAINE HYDROCHLORIDE
     Dosage: ADM ROUTE - ORAL TOPICAL?TYPE - UNIT DOSE CUP?SIZE 15 ML
  2. CHLORHEXIDINE GLUCONATE. [Suspect]
     Active Substance: CHLORHEXIDINE GLUCONATE
     Dosage: TYPE - UNIT DOSE CUP?SIZE - 15 ML
     Route: 048

REACTIONS (2)
  - Product packaging confusion [None]
  - Drug dispensing error [None]
